FAERS Safety Report 6110639-3 (Version None)
Quarter: 2009Q1

REPORT INFORMATION
  Report Type: 
  Country: None (occurrence: None)
  Receive Date: 20090310
  Receipt Date: 20090227
  Transmission Date: 20090719
  Serious: Yes (Other)
  Sender: FDA-Public Use
  Company Number: US-JNJCH-2009005662

PATIENT
  Age: 21 Year
  Sex: Male
  Weight: 117.9 kg

DRUGS (1)
  1. ADVANCED LISTERINE WITH TARTAR PROTECTION [Suspect]
     Indication: DENTAL DISORDER PROPHYLAXIS
     Dosage: TEXT:20 ML ONCE PER DAY
     Route: 048

REACTIONS (3)
  - APPLICATION SITE BURN [None]
  - APPLICATION SITE VESICLES [None]
  - ORAL DISORDER [None]
